FAERS Safety Report 4740774-3 (Version None)
Quarter: 2005Q3

REPORT INFORMATION
  Report Type: 
  Country: None (occurrence: None)
  Receive Date: 20050801
  Receipt Date: 20050629
  Transmission Date: 20060218
  Serious: No
  Sender: FDA-Public Use
  Company Number: 2005PV000188

PATIENT
  Age: 57 Year
  Sex: Male

DRUGS (9)
  1. BYETTA [Suspect]
     Indication: DIABETES MELLITUS NON-INSULIN-DEPENDENT
     Dosage: 5 UG;BID;SC
     Route: 058
     Dates: start: 20050627
  2. GLUCOPHAGE [Concomitant]
  3. ACTOS [Concomitant]
  4. AMARYL [Concomitant]
  5. ACCUPRIL [Concomitant]
  6. HYDROCHLOROTHIAZIDE [Concomitant]
  7. ZOCOR [Concomitant]
  8. SYNTHROID [Concomitant]
  9. ANDROGEL [Concomitant]

REACTIONS (1)
  - DECREASED APPETITE [None]
